FAERS Safety Report 12716658 (Version 1)
Quarter: 2016Q3

REPORT INFORMATION
  Report Type: Spontaneous
  Country: US (occurrence: US)
  Receive Date: 20160906
  Receipt Date: 20160906
  Transmission Date: 20161109
  Serious: Yes (Other)
  Sender: FDA-Public Use
  Company Number: US-ASTRAZENECA-2016SE92444

PATIENT
  Sex: Male

DRUGS (2)
  1. BYETTA [Suspect]
     Active Substance: EXENATIDE
     Route: 058
     Dates: start: 20100127, end: 201508
  2. VICTOZA [Suspect]
     Active Substance: LIRAGLUTIDE
     Route: 065
     Dates: start: 20150327, end: 201508

REACTIONS (1)
  - Pancreatic carcinoma metastatic [Unknown]

NARRATIVE: CASE EVENT DATE: 20150911
